FAERS Safety Report 10051477 (Version 2)
Quarter: 2014Q2

REPORT INFORMATION
  Report Type: Report from Study
  Country: US (occurrence: US)
  Receive Date: 20140401
  Receipt Date: 20140401
  Transmission Date: 20141212
  Serious: Yes (Hospitalization)
  Sender: FDA-Public Use
  Company Number: US-UCBSA-112399

PATIENT
  Age: 48 Year
  Sex: Female
  Weight: 70.3 kg

DRUGS (10)
  1. VIMPAT [Suspect]
     Indication: EPILEPSY
     Route: 048
     Dates: start: 20131223
  2. VIMPAT [Suspect]
     Indication: EPILEPSY
     Route: 048
     Dates: start: 2013, end: 201312
  3. KEPPRA [Suspect]
     Indication: EPILEPSY
     Dosage: 500MG AM/1000MG PM
     Route: 048
  4. DILANTIN [Suspect]
     Indication: EPILEPSY
     Dates: end: 20140204
  5. DILANTIN [Suspect]
     Indication: EPILEPSY
     Dosage: 100/50/100
  6. DILANTIN [Suspect]
     Indication: EPILEPSY
  7. LAMICTAL [Concomitant]
     Indication: EPILEPSY
     Route: 048
  8. DILAUDUD [Concomitant]
     Indication: PAIN
     Route: 048
     Dates: start: 20140110, end: 20140113
  9. DILAUDUD [Concomitant]
     Indication: PAIN
     Route: 048
     Dates: start: 20140114
  10. PLAGUENIL [Concomitant]
     Indication: SYSTEMIC LUPUS ERYTHEMATOSUS
     Route: 048

REACTIONS (3)
  - Vomiting [Unknown]
  - Nausea [Recovered/Resolved]
  - Drug level increased [Recovered/Resolved]
